FAERS Safety Report 9663087 (Version 1)
Quarter: 2013Q4

REPORT INFORMATION
  Report Type: Report from Study
  Country: US (occurrence: US)
  Receive Date: 20131031
  Receipt Date: 20131031
  Transmission Date: 20140711
  Serious: Yes (Hospitalization)
  Sender: FDA-Public Use
  Company Number: US-ABBVIE-13P-163-1161660-00

PATIENT
  Age: 76 Year
  Sex: Male

DRUGS (4)
  1. HUMIRA [Suspect]
     Indication: PSORIASIS
     Dates: start: 20130823
  2. UNKNOWN MEDICATION [Concomitant]
     Indication: HYPERTENSION
  3. UNKNOWN MEDICATION [Concomitant]
     Indication: BLOOD CHOLESTEROL INCREASED
  4. UNKNOWN MEDICATION [Concomitant]
     Indication: NEUROPATHY PERIPHERAL

REACTIONS (4)
  - Loss of consciousness [Recovering/Resolving]
  - Chest discomfort [Recovering/Resolving]
  - Dyspnoea [Recovering/Resolving]
  - Myocardial infarction [Recovering/Resolving]
